FAERS Safety Report 19725862 (Version 1)
Quarter: 2021Q3

REPORT INFORMATION
  Report Type: Spontaneous
  Country: US (occurrence: US)
  Receive Date: 20210819
  Receipt Date: 20210819
  Transmission Date: 20211014
  Serious: No
  Sender: FDA-Public Use
  Company Number: US-MANNKIND CORPORATION-2021MK000035

PATIENT
  Age: 67 Year
  Sex: Male
  Weight: 123.03 kg

DRUGS (10)
  1. VITAMIN E [Concomitant]
     Active Substance: .ALPHA.-TOCOPHEROL
     Indication: PRODUCT USED FOR UNKNOWN INDICATION
  2. MAGNESIUM [Concomitant]
     Active Substance: MAGNESIUM
     Indication: PRODUCT USED FOR UNKNOWN INDICATION
  3. AFREZZA [Suspect]
     Active Substance: INSULIN HUMAN
     Dates: start: 202011
  4. JARDIANCE [Concomitant]
     Active Substance: EMPAGLIFLOZIN
     Indication: PRODUCT USED FOR UNKNOWN INDICATION
  5. VASCEPA [Concomitant]
     Active Substance: ICOSAPENT ETHYL
     Indication: PRODUCT USED FOR UNKNOWN INDICATION
  6. AFREZZA [Suspect]
     Active Substance: INSULIN HUMAN
     Indication: TYPE 2 DIABETES MELLITUS
     Dates: start: 202011
  7. VITAMIN D [Concomitant]
     Active Substance: VITAMIN D NOS
  8. AFREZZA [Suspect]
     Active Substance: INSULIN HUMAN
     Dates: start: 202011
  9. METFORMIN [Concomitant]
     Active Substance: METFORMIN HYDROCHLORIDE
     Indication: PRODUCT USED FOR UNKNOWN INDICATION
  10. INSULIN [Concomitant]
     Active Substance: INSULIN NOS
     Indication: PRODUCT USED FOR UNKNOWN INDICATION

REACTIONS (2)
  - Feeling abnormal [Not Recovered/Not Resolved]
  - Weight decreased [Not Recovered/Not Resolved]

NARRATIVE: CASE EVENT DATE: 202011
